FAERS Safety Report 19971334 (Version 1)
Quarter: 2021Q4

REPORT INFORMATION
  Report Type: Report from Study
  Country: None (occurrence: IL)
  Receive Date: 20211020
  Receipt Date: 20211020
  Transmission Date: 20220303
  Serious: Yes (Other)
  Sender: FDA-Public Use
  Company Number: IL-ABBVIE-20K-082-3609096-00

PATIENT
  Sex: Female

DRUGS (2)
  1. HUMIRA [Suspect]
     Active Substance: ADALIMUMAB
     Indication: Hidradenitis
     Route: 058
     Dates: start: 20200708, end: 2020
  2. HUMIRA [Suspect]
     Active Substance: ADALIMUMAB
     Route: 058
     Dates: start: 2020, end: 20210901

REACTIONS (7)
  - Monoplegia [Not Recovered/Not Resolved]
  - Subcutaneous abscess [Not Recovered/Not Resolved]
  - Wrong technique in device usage process [Unknown]
  - Product communication issue [Not Recovered/Not Resolved]
  - Product administered at inappropriate site [Unknown]
  - Abscess [Not Recovered/Not Resolved]
  - Pain [Not Recovered/Not Resolved]

NARRATIVE: CASE EVENT DATE: 20200101
